FAERS Safety Report 12840754 (Version 1)
Quarter: 2016Q4

REPORT INFORMATION
  Report Type: Spontaneous
  Country: JP (occurrence: JP)
  Receive Date: 20161012
  Receipt Date: 20161012
  Transmission Date: 20170207
  Serious: Yes (Death, Life-Threatening, Other)
  Sender: FDA-Public Use
  Company Number: JP-PFIZER INC-2016471577

PATIENT
  Age: 37 Year
  Sex: Female

DRUGS (2)
  1. CARBOPLATIN. [Suspect]
     Active Substance: CARBOPLATIN
     Indication: PERICARDIAL MESOTHELIOMA MALIGNANT
     Dosage: AREA UNDER THE CURVE OF 5.0, EVERY 28 DAYS FOR A 4 WEEK CYCLE
  2. PEMETREXED [Suspect]
     Active Substance: PEMETREXED
     Indication: PERICARDIAL MESOTHELIOMA MALIGNANT
     Dosage: EVERY 28 DAYS FOR A 4 WEEK CYCLE

REACTIONS (3)
  - Pleural effusion [Fatal]
  - Cardiac tamponade [Fatal]
  - Condition aggravated [Fatal]
